FAERS Safety Report 4460112-3 (Version None)
Quarter: 2004Q3

REPORT INFORMATION
  Report Type: 
  Country: None (occurrence: None)
  Receive Date: 20040928
  Receipt Date: 20031212
  Transmission Date: 20050211
  Serious: No
  Sender: FDA-Public Use
  Company Number: US-GLAXOSMITHKLINE-A0442991A

PATIENT
  Age: 79 Year
  Sex: Male

DRUGS (8)
  1. SEREVENT [Suspect]
     Indication: ASTHMA
     Route: 055
     Dates: start: 19990615, end: 20031211
  2. COUMADIN [Concomitant]
  3. DILTIA [Concomitant]
  4. HYTRIN [Concomitant]
  5. PROSCAR [Concomitant]
  6. ALBUTEROL [Concomitant]
  7. LASIX [Concomitant]
  8. POTASSIUM [Concomitant]

REACTIONS (1)
  - DRUG INEFFECTIVE [None]
